FAERS Safety Report 6945105-6 (Version None)
Quarter: 2010Q3

REPORT INFORMATION
  Report Type: 
  Country: None (occurrence: None)
  Receive Date: 20100827
  Receipt Date: 20091109
  Transmission Date: 20110219
  Serious: No
  Sender: FDA-Public Use
  Company Number: A0816082A

PATIENT
  Age: 59 Year
  Sex: Female

DRUGS (1)
  1. BECONASE [Suspect]
     Indication: PRODUCT USED FOR UNKNOWN INDICATION
     Route: 045

REACTIONS (2)
  - DRUG INEFFECTIVE [None]
  - MIGRAINE [None]
